FAERS Safety Report 14683922 (Version 3)
Quarter: 2018Q1

REPORT INFORMATION
  Report Type: Spontaneous
  Country: NZ (occurrence: NZ)
  Receive Date: 20180327
  Receipt Date: 20180329
  Transmission Date: 20180509
  Serious: Yes (Other)
  Sender: FDA-Public Use
  Company Number: NZ-TEVA-2018-NZ-869893

PATIENT
  Age: 72 Year
  Sex: Female

DRUGS (1)
  1. CHLORAFAST [Suspect]
     Active Substance: CHLORAMPHENICOL
     Indication: CONJUNCTIVITIS
     Dosage: CHLORAFAST 0.5%
     Route: 047
     Dates: start: 20180213, end: 20180316

REACTIONS (6)
  - Tongue erythema [Not Recovered/Not Resolved]
  - Tongue ulceration [Not Recovered/Not Resolved]
  - Swollen tongue [Recovered/Resolved]
  - Lip swelling [Recovering/Resolving]
  - Skin texture abnormal [Not Recovered/Not Resolved]
  - Dysphagia [Not Recovered/Not Resolved]

NARRATIVE: CASE EVENT DATE: 201802
